FAERS Safety Report 4731320-9 (Version None)
Quarter: 2005Q3

REPORT INFORMATION
  Report Type: 
  Country: None (occurrence: None)
  Receive Date: 20050802
  Receipt Date: 20050721
  Transmission Date: 20060218
  Serious: Yes (Other)
  Sender: FDA-Public Use
  Company Number: JP-BRISTOL-MYERS SQUIBB COMPANY-13052246

PATIENT
  Age: 77 Year
  Sex: Female

DRUGS (12)
  1. GATIFLO TABS 100 MG [Suspect]
     Indication: UPPER RESPIRATORY TRACT INFLAMMATION
     Route: 048
     Dates: start: 20050714, end: 20050718
  2. NEUQUINON [Concomitant]
     Route: 048
     Dates: start: 20050323
  3. ASPIRIN [Concomitant]
     Route: 048
     Dates: start: 20050323
  4. MICARDIS [Concomitant]
     Route: 048
     Dates: start: 20050323
  5. NORVASC [Concomitant]
     Route: 048
     Dates: start: 20050323
  6. KETOPROFEN [Concomitant]
     Route: 062
     Dates: start: 20050323
  7. LIPITOR [Concomitant]
     Route: 048
     Dates: start: 20050323
  8. CYANOCOBALAMIN [Concomitant]
     Route: 048
     Dates: start: 20050323
  9. TENORMIN [Concomitant]
     Route: 048
     Dates: start: 20050323
  10. LORCAM [Concomitant]
     Route: 048
     Dates: start: 20050323
  11. LASIX [Concomitant]
     Route: 048
     Dates: start: 20050323
  12. SLOW-K [Concomitant]
     Route: 048
     Dates: start: 20050323

REACTIONS (1)
  - HYPERGLYCAEMIA [None]
